FAERS Safety Report 12262694 (Version 1)
Quarter: 2016Q2

REPORT INFORMATION
  Report Type: Spontaneous
  Country: US (occurrence: None)
  Receive Date: 20160412
  Receipt Date: 20160412
  Transmission Date: 20160815
  Serious: No
  Sender: FDA-Public Use
  Company Number: None

PATIENT
  Age: 32 Year
  Sex: Female
  Weight: 55 kg

DRUGS (2)
  1. PRILOSEC [Suspect]
     Active Substance: OMEPRAZOLE MAGNESIUM
     Indication: GASTRITIS
     Dosage: ONE A DAY
     Route: 048
     Dates: start: 20160410, end: 20160411
  2. PRILOSEC [Suspect]
     Active Substance: OMEPRAZOLE MAGNESIUM
     Indication: GASTROOESOPHAGEAL REFLUX DISEASE
     Dosage: ONE A DAY
     Route: 048
     Dates: start: 20160410, end: 20160411

REACTIONS (12)
  - Chills [None]
  - Myalgia [None]
  - Pharyngeal ulceration [None]
  - Peripheral coldness [None]
  - Fatigue [None]
  - Pain in extremity [None]
  - Pain in jaw [None]
  - Odynophagia [None]
  - Paraesthesia [None]
  - Bone pain [None]
  - Arthralgia [None]
  - Anxiety [None]

NARRATIVE: CASE EVENT DATE: 20160410
